FAERS Safety Report 25700506 (Version 1)
Quarter: 2025Q3

REPORT INFORMATION
  Report Type: Spontaneous
  Country: MA (occurrence: MA)
  Receive Date: 20250819
  Receipt Date: 20250819
  Transmission Date: 20251020
  Serious: Yes (Other)
  Sender: GLAND PHARMA LTD
  Company Number: MA-GLANDPHARMA-MA-2025GLNLIT01696

PATIENT
  Age: 41 Year
  Sex: Female

DRUGS (1)
  1. CYTARABINE [Suspect]
     Active Substance: CYTARABINE
     Indication: Acute undifferentiated leukaemia
     Route: 065

REACTIONS (3)
  - Skin necrosis [Unknown]
  - Erysipelas [Unknown]
  - Lung disorder [Unknown]
